FAERS Safety Report 25987324 (Version 1)
Quarter: 2025Q4

REPORT INFORMATION
  Report Type: Spontaneous
  Country: GB (occurrence: GB)
  Receive Date: 20251103
  Receipt Date: 20251103
  Transmission Date: 20260118
  Serious: No
  Sender: ALKEM
  Company Number: None

PATIENT

DRUGS (2)
  1. IBUPROFEN [Suspect]
     Active Substance: IBUPROFEN
     Indication: Oropharyngeal pain
     Dosage: UNK (TABLETS)
     Route: 065
  2. ACETAMINOPHEN [Suspect]
     Active Substance: ACETAMINOPHEN
     Indication: Oropharyngeal pain
     Dosage: UNK (TABLETS)
     Route: 065

REACTIONS (7)
  - Hiccups [Unknown]
  - Dysgeusia [Unknown]
  - Ageusia [Unknown]
  - Dyspnoea [Unknown]
  - Suffocation feeling [Unknown]
  - Choking sensation [Unknown]
  - Decreased appetite [Unknown]
